FAERS Safety Report 11763299 (Version 1)
Quarter: 2015Q4

REPORT INFORMATION
  Report Type: Spontaneous
  Country: US (occurrence: US)
  Receive Date: 20151120
  Receipt Date: 20151120
  Transmission Date: 20160304
  Serious: No
  Sender: FDA-Public Use
  Company Number: US-ELI_LILLY_AND_COMPANY-US201302008669

PATIENT
  Sex: Female

DRUGS (1)
  1. FORTEO [Suspect]
     Active Substance: TERIPARATIDE
     Indication: OSTEOPOROSIS
     Dosage: 20 UG, QD

REACTIONS (9)
  - Hypokinesia [Unknown]
  - Asthenia [Not Recovered/Not Resolved]
  - Injection site discomfort [Unknown]
  - Angiopathy [Unknown]
  - Drug dose omission [Unknown]
  - Pain [Unknown]
  - Joint injury [Unknown]
  - Malaise [Unknown]
  - Fatigue [Unknown]
